FAERS Safety Report 16886332 (Version 1)
Quarter: 2019Q4

REPORT INFORMATION
  Report Type: Spontaneous
  Country: PT (occurrence: PT)
  Receive Date: 20191004
  Receipt Date: 20191004
  Transmission Date: 20200122
  Serious: Yes (Other)
  Sender: FDA-Public Use
  Company Number: PT-MYLANLABS-2019M1090373

PATIENT

DRUGS (1)
  1. GEMCITABINE. [Suspect]
     Active Substance: GEMCITABINE
     Indication: BLADDER NEOPLASM
     Dosage: 2 G IN 50 ML OF NACL WEEKLY, WITH A TOTAL DURATION OF 6 WEEKS
     Dates: start: 2014, end: 2015

REACTIONS (3)
  - Dysuria [Unknown]
  - Malaise [Unknown]
  - Squamous cell carcinoma [Unknown]
